FAERS Safety Report 10391083 (Version 1)
Quarter: 2014Q3

REPORT INFORMATION
  Report Type: Spontaneous
  Country: US (occurrence: US)
  Receive Date: 20140818
  Receipt Date: 20140818
  Transmission Date: 20150326
  Serious: Yes (Other)
  Sender: FDA-Public Use
  Company Number: US-VIIV HEALTHCARE LIMITED-A1084576A

PATIENT
  Sex: Male

DRUGS (3)
  1. COMBIVIR [Suspect]
     Active Substance: LAMIVUDINE\ZIDOVUDINE
     Indication: PNEUMONIA
  2. IBUPROFEN. [Concomitant]
     Active Substance: IBUPROFEN
  3. TRICOR [Concomitant]
     Active Substance: FENOFIBRATE

REACTIONS (4)
  - Visual acuity reduced [Unknown]
  - Off label use [Unknown]
  - Glaucoma [Not Recovered/Not Resolved]
  - Cataract [Unknown]

NARRATIVE: CASE EVENT DATE: 2012
